FAERS Safety Report 15356187 (Version 1)
Quarter: 2018Q3

REPORT INFORMATION
  Report Type: Report from Study
  Country: AR (occurrence: AR)
  Receive Date: 20180906
  Receipt Date: 20180906
  Transmission Date: 20181010
  Serious: Yes (Hospitalization, Other)
  Sender: FDA-Public Use
  Company Number: AR-ACTELION-A-CH2018-178398

PATIENT
  Age: 51 Year
  Sex: Male
  Weight: 78 kg

DRUGS (1)
  1. TRACLEER [Suspect]
     Active Substance: BOSENTAN
     Indication: PRODUCT USED FOR UNKNOWN INDICATION
     Dosage: 1 DF, BID
     Route: 048
     Dates: start: 20120101

REACTIONS (2)
  - Haemorrhage [Recovered/Resolved]
  - Transfusion [Unknown]

NARRATIVE: CASE EVENT DATE: 201808
